FAERS Safety Report 14855655 (Version 1)
Quarter: 2018Q2

REPORT INFORMATION
  Report Type: Spontaneous
  Country: US (occurrence: US)
  Receive Date: 20180507
  Receipt Date: 20180507
  Transmission Date: 20180711
  Serious: No
  Sender: FDA-Public Use
  Company Number: US-ROCHE-1952728

PATIENT
  Age: 65 Year
  Sex: Male

DRUGS (1)
  1. ESBRIET [Suspect]
     Active Substance: PIRFENIDONE
     Indication: IDIOPATHIC PULMONARY FIBROSIS
     Dosage: 2 PILLS
     Route: 048
     Dates: start: 201412

REACTIONS (12)
  - Dizziness [Recovered/Resolved]
  - Malaise [Recovering/Resolving]
  - Productive cough [Recovering/Resolving]
  - Irritability [Recovering/Resolving]
  - Aggression [Recovering/Resolving]
  - Nausea [Recovering/Resolving]
  - Cough [Recovering/Resolving]
  - Oxygen saturation decreased [Recovered/Resolved]
  - Constipation [Recovering/Resolving]
  - Seasonal allergy [Recovering/Resolving]
  - Diarrhoea [Recovering/Resolving]
  - Respiratory tract infection [Recovering/Resolving]

NARRATIVE: CASE EVENT DATE: 201412
